FAERS Safety Report 19854885 (Version 1)
Quarter: 2021Q3

REPORT INFORMATION
  Report Type: Spontaneous
  Country: US (occurrence: US)
  Receive Date: 20210920
  Receipt Date: 20210920
  Transmission Date: 20211014
  Serious: Yes (Other)
  Sender: FDA-Public Use
  Company Number: US-FARMAPROD-202108-1453

PATIENT
  Age: 68 Year
  Sex: Male

DRUGS (7)
  1. ERYTHROMYCIN. [Concomitant]
     Active Substance: ERYTHROMYCIN
     Dates: start: 20210714, end: 20210818
  2. ZIRGAN [Concomitant]
     Active Substance: GANCICLOVIR
     Indication: HERPES ZOSTER
     Route: 047
     Dates: start: 20210621, end: 20210827
  3. AUTOLOGUS TEARS [Concomitant]
     Dates: start: 20210305
  4. PRESERVATIVE FREE TEARS [Concomitant]
     Indication: DRY EYE
     Dates: start: 20210208
  5. OXERVATE [Suspect]
     Active Substance: CENEGERMIN-BKBJ
     Indication: NEUROTROPHIC KERATOPATHY
     Route: 047
     Dates: start: 20210809, end: 20210818
  6. PREDNISOLONE. [Concomitant]
     Active Substance: PREDNISOLONE
     Route: 047
     Dates: start: 20210302, end: 20210818
  7. ACYCLOVIR. [Concomitant]
     Active Substance: ACYCLOVIR
     Indication: HERPES ZOSTER
     Route: 048
     Dates: start: 20200720

REACTIONS (3)
  - Foreign body sensation in eyes [Not Recovered/Not Resolved]
  - Eye infection bacterial [Recovered/Resolved]
  - Chalazion [Recovered/Resolved]

NARRATIVE: CASE EVENT DATE: 20210818
